FAERS Safety Report 10018297 (Version 1)
Quarter: 2014Q1

REPORT INFORMATION
  Report Type: Spontaneous
  Country: US (occurrence: US)
  Receive Date: 20140318
  Receipt Date: 20140318
  Transmission Date: 20141002
  Serious: Yes (Death)
  Sender: FDA-Public Use
  Company Number: US-BRISTOL-MYERS SQUIBB COMPANY-19901784

PATIENT
  Age: 75 Year
  Sex: Female
  Weight: 36.28 kg

DRUGS (1)
  1. ERBITUX [Suspect]
     Indication: THROAT CANCER

REACTIONS (1)
  - Malignant neoplasm progression [Fatal]
